FAERS Safety Report 5285928-5 (Version None)
Quarter: 2007Q2

REPORT INFORMATION
  Report Type: 
  Country: None (occurrence: None)
  Receive Date: 20070404
  Receipt Date: 20070326
  Transmission Date: 20071010
  Serious: Yes (Hospitalization)
  Sender: FDA-Public Use
  Company Number: PHBS2006FI18731

PATIENT
  Age: 59 Year
  Sex: Male

DRUGS (6)
  1. CLOZAPINE [Suspect]
     Dosage: UNK, UNK
     Dates: start: 20061119, end: 20061209
  2. ZYPREXA [Suspect]
  3. ENALAPRIL MALEATE [Concomitant]
  4. PLAVIX [Concomitant]
     Route: 048
  5. DEPAKENE [Concomitant]
     Indication: MANIA
     Dates: start: 20060301
  6. TRILEPTAL [Concomitant]

REACTIONS (17)
  - BILIARY TRACT INFECTION [None]
  - BLOOD TEST ABNORMAL [None]
  - C-REACTIVE PROTEIN INCREASED [None]
  - CARDIAC FAILURE [None]
  - CHOLECYSTITIS [None]
  - COLD SWEAT [None]
  - DYSPNOEA [None]
  - HYPERHIDROSIS [None]
  - MUSCULAR WEAKNESS [None]
  - NAUSEA [None]
  - PLATELET COUNT DECREASED [None]
  - PLEURAL EFFUSION [None]
  - PYREXIA [None]
  - SALIVARY HYPERSECRETION [None]
  - SEPSIS [None]
  - TREMOR [None]
  - VOMITING [None]
